FAERS Safety Report 19869258 (Version 1)
Quarter: 2021Q3

REPORT INFORMATION
  Report Type: Spontaneous
  Country: RO (occurrence: RO)
  Receive Date: 20210922
  Receipt Date: 20210922
  Transmission Date: 20211014
  Serious: Yes (Other)
  Sender: FDA-Public Use
  Company Number: RO-MYLANLABS-2021M1063987

PATIENT
  Age: 60 Year
  Sex: Male

DRUGS (4)
  1. METHYLPREDNISOLONE. [Concomitant]
     Active Substance: METHYLPREDNISOLONE
     Indication: EOSINOPHILIC FASCIITIS
     Dosage: 3 G
     Route: 048
  2. PREDNISONE. [Concomitant]
     Active Substance: PREDNISONE
     Dosage: 0.5 MG/KG PER DAY
     Route: 065
  3. METHOTREXATE. [Suspect]
     Active Substance: METHOTREXATE
     Indication: EOSINOPHILIC FASCIITIS
     Dosage: 10 MG/WEEK
     Route: 065
  4. PREDNISONE. [Concomitant]
     Active Substance: PREDNISONE
     Indication: EOSINOPHILIC FASCIITIS
     Dosage: 0.5 MG/KG, TID (PER DAY FOR 3)
     Route: 065

REACTIONS (3)
  - Thrombocytopenia [Unknown]
  - Drug ineffective for unapproved indication [Unknown]
  - Product use in unapproved indication [Unknown]

NARRATIVE: CASE EVENT DATE: 202008
